FAERS Safety Report 5236487-4 (Version None)
Quarter: 2007Q1

REPORT INFORMATION
  Report Type: 
  Country: None (occurrence: None)
  Receive Date: 20061208
  Receipt Date: 20060606
  Transmission Date: 20070707
  Serious: Yes (Other)
  Sender: FDA-Public Use
  Company Number: 2006UW11548

PATIENT
  Age: 79 Year
  Sex: Female
  Weight: 58.059 kg

DRUGS (2)
  1. CRESTOR [Suspect]
     Indication: BLOOD CHOLESTEROL INCREASED
     Dosage: 5 MG DAILY PO
     Route: 048
  2. ZETIA [Concomitant]

REACTIONS (5)
  - DEPRESSION [None]
  - FEELING ABNORMAL [None]
  - MEMORY IMPAIRMENT [None]
  - PAIN IN EXTREMITY [None]
  - PARAESTHESIA [None]
